FAERS Safety Report 15974385 (Version 1)
Quarter: 2019Q1

REPORT INFORMATION
  Report Type: Report from Study
  Country: BR (occurrence: BR)
  Receive Date: 20190218
  Receipt Date: 20190218
  Transmission Date: 20190418
  Serious: Yes (Hospitalization)
  Sender: FDA-Public Use
  Company Number: BR-SA-2019SA040931

PATIENT
  Age: 42 Year
  Sex: Male
  Weight: 103 kg

DRUGS (3)
  1. INSULIN GLARGINE/LIXISENATIDE [Suspect]
     Active Substance: INSULIN GLARGINE\LIXISENATIDE
     Indication: TYPE 2 DIABETES MELLITUS
     Dosage: 14 IU, QD
     Route: 058
     Dates: start: 20181210
  2. SOLOSTAR [Suspect]
     Active Substance: DEVICE
     Indication: TYPE 2 DIABETES MELLITUS
     Dosage: UNK
  3. INSULIN GLULISINE [Suspect]
     Active Substance: INSULIN GLULISINE
     Dosage: UNK

REACTIONS (4)
  - Back pain [Recovered/Resolved]
  - Neck pain [Recovered/Resolved]
  - Hypoglycaemia [Recovered/Resolved]
  - Diabetic metabolic decompensation [Recovered/Resolved]

NARRATIVE: CASE EVENT DATE: 20190110
